FAERS Safety Report 22113460 (Version 3)
Quarter: 2023Q2

REPORT INFORMATION
  Report Type: Report from Study
  Country: AR (occurrence: AR)
  Receive Date: 20230320
  Receipt Date: 20230518
  Transmission Date: 20230722
  Serious: Yes (Other)
  Sender: FDA-Public Use
  Company Number: AR-002147023-NVSC2022AR119352

PATIENT
  Sex: Male

DRUGS (1)
  1. COSENTYX [Suspect]
     Active Substance: SECUKINUMAB
     Indication: Psoriatic arthropathy
     Dosage: 300 MG, QMO
     Route: 058
     Dates: start: 20200101

REACTIONS (6)
  - Blindness [Unknown]
  - Cataract [Unknown]
  - Visual impairment [Unknown]
  - Malaise [Unknown]
  - HLA-B*27 positive [Unknown]
  - Arthropathy [Unknown]
